FAERS Safety Report 7592327-X (Version None)
Quarter: 2011Q3

REPORT INFORMATION
  Report Type: 
  Country: None (occurrence: None)
  Receive Date: 20110706
  Receipt Date: 20110622
  Transmission Date: 20111222
  Serious: Yes (Death)
  Sender: FDA-Public Use
  Company Number: JP-JNJFOC-20101104528

PATIENT
  Age: 74 Year
  Sex: Female

DRUGS (3)
  1. REMICADE [Suspect]
     Indication: RHEUMATOID ARTHRITIS
     Route: 042
     Dates: start: 20040201
  2. REMICADE [Suspect]
     Dosage: APPROXIMATELY 40TH DOSE
     Route: 042
     Dates: start: 20100301
  3. METHOTREXATE [Concomitant]
     Indication: RHEUMATOID ARTHRITIS
     Route: 048

REACTIONS (6)
  - BACTERIAL PYELONEPHRITIS [None]
  - HEPATIC FAILURE [None]
  - RENAL FAILURE [None]
  - DYSPNOEA [None]
  - HISTIOCYTOSIS HAEMATOPHAGIC [None]
  - ESCHERICHIA INFECTION [None]
